FAERS Safety Report 13966401 (Version 2)
Quarter: 2017Q3

REPORT INFORMATION
  Report Type: Spontaneous
  Country: GB (occurrence: GB)
  Receive Date: 20170913
  Receipt Date: 20170929
  Transmission Date: 20171128
  Serious: Yes (Other)
  Sender: FDA-Public Use
  Company Number: GB-INTERNATIONAL MEDICATION SYSTEMS, LIMITED-2026084

PATIENT
  Sex: Male

DRUGS (12)
  1. WATER. [Suspect]
     Active Substance: WATER
     Route: 065
  2. BAXTER CALCIUM CHLORIDE, 1 MMOL/ML, 500 ML BAG [Suspect]
     Active Substance: CALCIUM CHLORIDE
     Route: 065
  3. BAXTER MAGNESIUM SULPHATE 500 ML BAG [Suspect]
     Active Substance: MAGNESIUM SULFATE
  4. BAXTER WATER 300 ML BAG [Suspect]
     Active Substance: WATER
     Route: 065
  5. CERNEVIT [Suspect]
     Active Substance: VITAMINS
     Route: 065
  6. BAXTER SODIUM GLYCEROPHOSPHATE 500 ML BAG [Suspect]
     Active Substance: SODIUM GLYCEROPHOSPHATE
  7. BAXTER GLUCOSE 50% BP (3000 ML BAG) [Suspect]
     Active Substance: DEXTROSE
     Indication: PARENTERAL NUTRITION
     Route: 065
  8. SELENIUM [Suspect]
     Active Substance: SELENIUM
     Route: 065
  9. BAXTER POTASSIUM CHLORIDE 500 ML BAG [Suspect]
     Active Substance: POTASSIUM CHLORIDE
     Route: 065
  10. SODIUM CHLORIDE. [Suspect]
     Active Substance: SODIUM CHLORIDE
     Route: 065
  11. SYNTHAMIN [Suspect]
     Active Substance: AMINO ACIDS
     Route: 065
  12. FRESENIUS ADDITRACE 50 ML SYRINGE [Suspect]
     Active Substance: MINERALS
     Route: 065

REACTIONS (3)
  - Infection [Recovered/Resolved]
  - Vomiting [Recovered/Resolved]
  - Chills [Recovered/Resolved]

NARRATIVE: CASE EVENT DATE: 20170727
